FAERS Safety Report 8996201 (Version 2)
Quarter: 2013Q1

REPORT INFORMATION
  Report Type: Report from Study
  Country: US (occurrence: US)
  Receive Date: 20130103
  Receipt Date: 20130114
  Transmission Date: 20140127
  Serious: Yes (Death, Hospitalization)
  Sender: FDA-Public Use
  Company Number: US-ACTELION-A-NJ2012-77125

PATIENT
  Age: 72 Year
  Sex: Male

DRUGS (3)
  1. VENTAVIS [Suspect]
     Indication: PULMONARY HYPERTENSION
     Route: 055
  2. COUMADIN [Concomitant]
  3. LOVENOX [Concomitant]

REACTIONS (4)
  - Pulmonary alveolar haemorrhage [Fatal]
  - Pulmonary hypertension [Fatal]
  - Disease progression [Fatal]
  - Endarterectomy [Fatal]
